FAERS Safety Report 23379305 (Version 1)
Quarter: 2024Q1

REPORT INFORMATION
  Report Type: Spontaneous
  Country: JP (occurrence: JP)
  Receive Date: 20240108
  Receipt Date: 20240108
  Transmission Date: 20240409
  Serious: Yes (Hospitalization, Other)
  Sender: FDA-Public Use
  Company Number: JP-BoehringerIngelheim-2024-BI-000393

PATIENT
  Age: 44 Year
  Sex: Female

DRUGS (2)
  1. NINTEDANIB [Suspect]
     Active Substance: NINTEDANIB
     Indication: Pulmonary fibrosis
  2. NINTEDANIB [Suspect]
     Active Substance: NINTEDANIB

REACTIONS (4)
  - Respiratory failure [Unknown]
  - Right ventricular failure [Unknown]
  - Interstitial lung disease [Unknown]
  - Diarrhoea [Unknown]
